FAERS Safety Report 25069295 (Version 1)
Quarter: 2025Q1

REPORT INFORMATION
  Report Type: Report from Study
  Country: US (occurrence: US)
  Receive Date: 20250312
  Receipt Date: 20250312
  Transmission Date: 20250408
  Serious: Yes (Other)
  Sender: AMGEN
  Company Number: US-AMGEN-USASL2025046401

PATIENT
  Age: 55 Year
  Sex: Male

DRUGS (1)
  1. KRYSTEXXA [Suspect]
     Active Substance: PEGLOTICASE
     Indication: Gouty tophus
     Route: 065
     Dates: start: 20250203

REACTIONS (4)
  - Cardiac flutter [Unknown]
  - Pain [Unknown]
  - Flushing [Unknown]
  - Gout [Unknown]

NARRATIVE: CASE EVENT DATE: 20250101
